FAERS Safety Report 5626002-5 (Version None)
Quarter: 2008Q1

REPORT INFORMATION
  Report Type: 
  Country: None (occurrence: None)
  Receive Date: 20080214
  Receipt Date: 20080206
  Transmission Date: 20080703
  Serious: Yes (Other)
  Sender: FDA-Public Use
  Company Number: PHHY2008BR01426

PATIENT
  Sex: Male

DRUGS (2)
  1. GALVUS MET [Suspect]
     Dosage: 1TAB VILDAGLIPTIN(AM), 2 TAB METFORMIN(PM)
     Route: 048
  2. METFORMIN HCL [Concomitant]
     Dosage: 1 TAB IN THE MORNING
     Route: 048

REACTIONS (1)
  - BLOOD GLUCOSE INCREASED [None]
